FAERS Safety Report 20622425 (Version 2)
Quarter: 2022Q1

REPORT INFORMATION
  Report Type: Report from Study
  Country: US (occurrence: None)
  Receive Date: 20220322
  Receipt Date: 20220323
  Transmission Date: 20220423
  Serious: Yes (Other)
  Sender: FDA-Public Use
  Company Number: US-Eisai Medical Research-EC-2022-110968

PATIENT
  Age: 83 Year
  Sex: Male

DRUGS (5)
  1. LENVIMA [Interacting]
     Active Substance: LENVATINIB
     Indication: Thyroid cancer
     Route: 048
     Dates: start: 202201, end: 2022
  2. LENVIMA [Interacting]
     Active Substance: LENVATINIB
     Route: 048
     Dates: start: 202202, end: 202202
  3. LENVIMA [Interacting]
     Active Substance: LENVATINIB
     Route: 048
     Dates: start: 202202, end: 20220209
  4. LENVIMA [Interacting]
     Active Substance: LENVATINIB
     Route: 048
     Dates: start: 202202
  5. LEVAQUIN [Interacting]
     Active Substance: LEVOFLOXACIN
     Indication: Product used for unknown indication
     Dosage: UNKNOWN DOSE AND FREQUENCY

REACTIONS (2)
  - Electrocardiogram QT prolonged [Unknown]
  - Drug interaction [Unknown]

NARRATIVE: CASE EVENT DATE: 20220301
